FAERS Safety Report 4735730-5 (Version None)
Quarter: 2005Q3

REPORT INFORMATION
  Report Type: 
  Country: None (occurrence: None)
  Receive Date: 20050805
  Receipt Date: 20050728
  Transmission Date: 20060218
  Serious: Yes (Hospitalization)
  Sender: FDA-Public Use
  Company Number: US-SANOFI-SYNTHELABO-F03200500105

PATIENT
  Age: 16 Year
  Sex: Female

DRUGS (14)
  1. ELOXATIN [Suspect]
     Indication: COLORECTAL CANCER METASTATIC
     Dosage: 2/1 CYCLE
     Route: 042
     Dates: start: 20050425, end: 20050425
  2. IRINOTECAN [Suspect]
     Route: 042
     Dates: start: 20050429, end: 20050429
  3. FLUOROURACIL [Suspect]
     Dosage: UNK
     Route: 042
  4. CETUXIMAB [Suspect]
     Dosage: UNK
     Route: 042
  5. LEUCOVORIN [Suspect]
     Dosage: UNK
     Route: 042
  6. BACTRIM [Concomitant]
     Dosage: UNK
     Route: 065
  7. BENADRYL [Concomitant]
     Dosage: UNK
     Route: 065
  8. NEOSPORIN [Concomitant]
     Dosage: UNK
     Route: 065
  9. OCTREOTIDE ACETATE [Concomitant]
     Dosage: UNK
     Route: 065
  10. PHENERGAN [Concomitant]
     Dosage: UNK
     Route: 065
  11. SODIUM CHLORIDE [Concomitant]
     Dosage: UNK
     Route: 065
  12. TYLENOL (CAPLET) [Concomitant]
     Dosage: UNK
     Route: 065
  13. VALIUM [Concomitant]
     Dosage: UNK
     Route: 065
  14. ZOFRAN [Concomitant]
     Dosage: UNK
     Route: 065

REACTIONS (6)
  - ABDOMINAL TENDERNESS [None]
  - BLOOD AMYLASE INCREASED [None]
  - DIARRHOEA [None]
  - DRUG INEFFECTIVE [None]
  - LIPASE INCREASED [None]
  - VOMITING [None]
